FAERS Safety Report 17101772 (Version 4)
Quarter: 2020Q1

REPORT INFORMATION
  Report Type: Report from Study
  Country: BE (occurrence: BE)
  Receive Date: 20191202
  Receipt Date: 20200117
  Transmission Date: 20200409
  Serious: Yes (Hospitalization, Other)
  Sender: FDA-Public Use
  Company Number: BE-EXELIXIS-XL18419025145

PATIENT
  Age: 87 Year
  Sex: Female
  Weight: 49 kg

DRUGS (2)
  1. CABOZANTINIB [Suspect]
     Active Substance: CABOZANTINIB
     Dosage: 40 MG, QD
     Route: 048
     Dates: start: 20191113, end: 20191121
  2. CABOZANTINIB [Suspect]
     Active Substance: CABOZANTINIB
     Indication: RENAL CELL CARCINOMA
     Dosage: 40 MG, QD
     Route: 048
     Dates: start: 20191017, end: 20191106

REACTIONS (11)
  - Hyponatraemia [Recovering/Resolving]
  - Hypomagnesaemia [Recovered/Resolved]
  - Muscle spasms [Recovering/Resolving]
  - Hypokalaemia [Recovered/Resolved]
  - Decreased appetite [Recovering/Resolving]
  - Pyrexia [Recovered/Resolved]
  - Lacrimation increased [Recovering/Resolving]
  - General physical health deterioration [Recovered/Resolved]
  - Diarrhoea [Recovered/Resolved]
  - Eczema [Recovering/Resolving]
  - Hypokalaemia [Recovered/Resolved]

NARRATIVE: CASE EVENT DATE: 20191104
